FAERS Safety Report 16100262 (Version 1)
Quarter: 2019Q1

REPORT INFORMATION
  Report Type: Spontaneous
  Country: IT (occurrence: IT)
  Receive Date: 20190321
  Receipt Date: 20190321
  Transmission Date: 20190418
  Serious: Yes (Other)
  Sender: FDA-Public Use
  Company Number: IT-MYLANLABS-2019M1025984

PATIENT
  Age: 55 Year
  Sex: Male

DRUGS (6)
  1. QUETIAPINE. [Suspect]
     Active Substance: QUETIAPINE
     Indication: PRODUCT USED FOR UNKNOWN INDICATION
     Dosage: UNK UNK, TOTAL
     Route: 048
     Dates: start: 20180903, end: 20180903
  2. INVEGA [Suspect]
     Active Substance: PALIPERIDONE
     Indication: PRODUCT USED FOR UNKNOWN INDICATION
     Dosage: UNK UNK, TOTAL
     Route: 048
     Dates: start: 20180903, end: 20180903
  3. TOPIRAMATE. [Suspect]
     Active Substance: TOPIRAMATE
     Indication: PRODUCT USED FOR UNKNOWN INDICATION
     Dosage: UNK UNK, TOTAL
     Route: 048
     Dates: start: 20180903, end: 20180903
  4. FLURAZEPAM [Suspect]
     Active Substance: FLURAZEPAM\FLURAZEPAM HYDROCHLORIDE
     Indication: PRODUCT USED FOR UNKNOWN INDICATION
     Dosage: UNK, TOTAL
     Route: 048
     Dates: start: 20180903, end: 20180903
  5. PREGABALIN. [Suspect]
     Active Substance: PREGABALIN
     Indication: PRODUCT USED FOR UNKNOWN INDICATION
     Dosage: UNK, TOTAL
     Route: 048
     Dates: start: 20180903, end: 20180903
  6. TRAZODONE [Suspect]
     Active Substance: TRAZODONE HYDROCHLORIDE
     Indication: PRODUCT USED FOR UNKNOWN INDICATION
     Dosage: UNK UNK, TOTAL
     Route: 048
     Dates: start: 20180903, end: 20180903

REACTIONS (6)
  - Tachycardia [Unknown]
  - Myoclonus [Unknown]
  - Intentional product misuse [Unknown]
  - Hypertonia [Unknown]
  - Intentional self-injury [Unknown]
  - Confusional state [Unknown]

NARRATIVE: CASE EVENT DATE: 20180903
